FAERS Safety Report 9837000 (Version 5)
Quarter: 2014Q2

REPORT INFORMATION
  Report Type: Spontaneous
  Country: US (occurrence: US)
  Receive Date: 20140123
  Receipt Date: 20140402
  Transmission Date: 20141212
  Serious: Yes (Other)
  Sender: FDA-Public Use
  Company Number: US-PFIZER INC-2014017275

PATIENT
  Age: 77 Year
  Sex: Female
  Weight: 86.17 kg

DRUGS (5)
  1. PREMARIN [Suspect]
     Indication: VAGINAL DISCHARGE
     Dosage: UNK, TWO / THREE TIMES PER WEEK
     Route: 067
     Dates: start: 20131203, end: 201401
  2. PREMARIN [Suspect]
     Indication: ATROPHIC VULVOVAGINITIS
  3. LISINOPRIL [Concomitant]
     Indication: HYPERTENSION
     Dosage: 20 MG, 1X/DAY
  4. ACTONEL [Concomitant]
     Indication: OSTEOPOROSIS
     Dosage: 150 MG, MONTHLY
     Route: 048
  5. TOPROL [Concomitant]
     Indication: HYPERTENSION
     Dosage: 25 MG, 2X/DAY

REACTIONS (7)
  - Hypertension [Unknown]
  - Blood iron increased [Unknown]
  - Ear swelling [Not Recovered/Not Resolved]
  - Pruritus generalised [Not Recovered/Not Resolved]
  - Alopecia [Not Recovered/Not Resolved]
  - Abdominal discomfort [Not Recovered/Not Resolved]
  - Drug ineffective [Unknown]
